FAERS Safety Report 6837702-3 (Version None)
Quarter: 2010Q3

REPORT INFORMATION
  Report Type: 
  Country: None (occurrence: None)
  Receive Date: 20100713
  Receipt Date: 20100701
  Transmission Date: 20110219
  Serious: Yes (Other)
  Sender: FDA-Public Use
  Company Number: AR-AMGEN-QUU420446

PATIENT
  Sex: Male
  Weight: 130 kg

DRUGS (2)
  1. ENBREL [Suspect]
     Indication: RHEUMATOID ARTHRITIS
     Route: 058
     Dates: start: 20081001, end: 20100415
  2. ENBREL [Suspect]
     Route: 058
     Dates: start: 20100507

REACTIONS (5)
  - BILIARY CIRRHOSIS [None]
  - CONDITION AGGRAVATED [None]
  - DIARRHOEA [None]
  - HEPATIC STEATOSIS [None]
  - RHEUMATOID ARTHRITIS [None]
